FAERS Safety Report 6070923-9 (Version None)
Quarter: 2009Q1

REPORT INFORMATION
  Report Type: 
  Country: None (occurrence: None)
  Receive Date: 20090209
  Receipt Date: 20090128
  Transmission Date: 20090719
  Serious: Yes (Other)
  Sender: FDA-Public Use
  Company Number: JP-PFIZER INC-2008101594

PATIENT

DRUGS (8)
  1. ADRIACIN [Suspect]
     Indication: NON-HODGKIN'S LYMPHOMA
     Dosage: 85 MG, ONCE EVERY 3 WEEKS
     Dates: start: 20070314, end: 20070619
  2. RITUXAN [Suspect]
     Indication: NON-HODGKIN'S LYMPHOMA
     Dosage: 635 MG, ONCE EVERY 3 WEEKS
     Dates: start: 20070314, end: 20070606
  3. ENDOXAN [Suspect]
     Indication: NON-HODGKIN'S LYMPHOMA
     Dosage: 1250 MG, ONCE EVERY 3 WEEKS
     Dates: start: 20070314, end: 20070619
  4. ONCOVIN [Suspect]
     Indication: NON-HODGKIN'S LYMPHOMA
     Dosage: 2 MG, ONCE EVERY 3 WEEKS
     Dates: start: 20070314, end: 20070619
  5. PREDONINE [Suspect]
     Indication: NON-HODGKIN'S LYMPHOMA
     Dosage: 100 MG, UNK
     Route: 048
     Dates: start: 20070314, end: 20070619
  6. SOLU-CORTEF [Concomitant]
     Dosage: 100 MG, ONCE EVERY 3 WEEKS
     Dates: start: 20070314, end: 20070619
  7. GRAN [Concomitant]
     Dosage: 75 UG, UNK
     Route: 058
     Dates: start: 20070324, end: 20070621
  8. MEYLON [Concomitant]

REACTIONS (1)
  - PNEUMONITIS [None]
